FAERS Safety Report 6126863-X (Version None)
Quarter: 2009Q1

REPORT INFORMATION
  Report Type: 
  Country: None (occurrence: None)
  Receive Date: 20090318
  Receipt Date: 20090306
  Transmission Date: 20090719
  Serious: Yes (Other)
  Sender: FDA-Public Use
  Company Number: B0564679A

PATIENT

DRUGS (11)
  1. MELPHALAN (FORMULATION UNKNOWN) (GENERIC) (MELPHALAN) [Suspect]
     Indication: HODGKIN'S DISEASE
     Dosage: CYCLIC / ORAL
     Route: 048
  2. CYCLOPHOSPHAMIDE [Suspect]
     Indication: HODGKIN'S DISEASE
     Dosage: CYCLIC / INTRAVENOUS
     Route: 042
  3. LOMUSTINE (FORMULATION UNKNOWN) (LOMUSTINE) [Suspect]
     Indication: HODGKIN'S DISEASE
     Dosage: CYCLIC / ORAL
     Route: 048
  4. VINDESINE (FORMULATION UNKNOWN) (VINDESINE) [Suspect]
     Indication: HODGKIN'S DISEASE
     Dosage: CYCLIC / INTRAVENOUS
     Route: 042
  5. PREDNISONE [Suspect]
     Indication: HODGKIN'S DISEASE
     Dosage: CYCLIC / ORAL
     Route: 048
  6. EPIRUBICIN [Suspect]
     Indication: HODGKIN'S DISEASE
     Dosage: / INTRAVENOUS
     Route: 042
  7. VINCRISTINE [Suspect]
     Indication: HODGKIN'S DISEASE
     Dosage: / INTRAVENOUS
     Route: 042
  8. PROCARBAZINE (FORMULATION UNKNOWN) (PROCARBAZINE) [Suspect]
     Indication: HODGKIN'S DISEASE
     Dosage: / ORAL
     Route: 048
  9. VINBLASTINE (FORMULATION UNKNOWN) (VINBLASTINE) [Suspect]
     Indication: HODGKIN'S DISEASE
     Dosage: / INTRAVENOUS
     Route: 042
  10. BLEOMYCIN (FORMULATION UNKNOWN) (BLEOMYCIN) [Suspect]
     Indication: HODGKIN'S DISEASE
     Dosage: / INTRAVENOUS
     Route: 042
  11. RADIOTHERAPY (FORMULATION UNKNOWN) (RADIOTHERAPY) [Suspect]

REACTIONS (1)
  - DEEP VEIN THROMBOSIS [None]
